FAERS Safety Report 10615214 (Version 2)
Quarter: 2014Q4

REPORT INFORMATION
  Report Type: Spontaneous
  Country: CA (occurrence: CA)
  Receive Date: 20141201
  Receipt Date: 20141216
  Transmission Date: 20150529
  Serious: Yes (Other)
  Sender: FDA-Public Use
  Company Number: CA-009507513-1411CAN012027

PATIENT
  Age: 16 Year
  Sex: Female
  Weight: 50 kg

DRUGS (5)
  1. POSANOL [Suspect]
     Active Substance: POSACONAZOLE
     Indication: ASPERGILLUS INFECTION
     Dosage: 300 MG DAILY
     Route: 042
     Dates: start: 2014
  2. POSANOL [Suspect]
     Active Substance: POSACONAZOLE
     Indication: ASPERGILLUS INFECTION
     Dosage: 400 MG, BID
     Route: 048
     Dates: start: 201411
  3. POSANOL [Suspect]
     Active Substance: POSACONAZOLE
     Indication: ZYGOMYCOSIS
  4. AMPHOTERICIN B (+) CHOLESTEROL (+) DISTEAROYLPHOSPHATIDYLGLYCEROL (+) [Concomitant]
     Active Substance: AMPHOTERICIN B\CHOLESTEROL
  5. POSANOL [Suspect]
     Active Substance: POSACONAZOLE
     Indication: ZYGOMYCOSIS

REACTIONS (2)
  - Diarrhoea [Not Recovered/Not Resolved]
  - Pneumonectomy [Unknown]

NARRATIVE: CASE EVENT DATE: 201411
